FAERS Safety Report 4607600-4 (Version None)
Quarter: 2005Q1

REPORT INFORMATION
  Report Type: 
  Country: None (occurrence: None)
  Receive Date: 20050314
  Receipt Date: 20050310
  Transmission Date: 20050727
  Serious: Yes (Hospitalization)
  Sender: FDA-Public Use
  Company Number: PHBS2005CH03488

PATIENT
  Age: 49 Year
  Sex: Male

DRUGS (2)
  1. STARLIX [Suspect]
     Dosage: 120 MG, TID
     Route: 048
  2. LANTUS [Suspect]
     Dosage: UNK, QD
     Route: 058

REACTIONS (5)
  - EPILEPSY [None]
  - FAECAL INCONTINENCE [None]
  - HYPOGLYCAEMIC COMA [None]
  - MEDICATION ERROR [None]
  - URINARY INCONTINENCE [None]
